FAERS Safety Report 19518553 (Version 2)
Quarter: 2021Q3

REPORT INFORMATION
  Report Type: Report from Study
  Country: US (occurrence: US)
  Receive Date: 20210712
  Receipt Date: 20210928
  Transmission Date: 20211014
  Serious: No
  Sender: FDA-Public Use
  Company Number: NVSC2021US150601

PATIENT
  Age: 46 Year
  Sex: Female

DRUGS (1)
  1. KESIMPTA [Suspect]
     Active Substance: OFATUMUMAB
     Indication: MULTIPLE SCLEROSIS
     Dosage: UNK (BENEATH THE SKIN)
     Route: 058
     Dates: start: 20210624

REACTIONS (3)
  - Back pain [Unknown]
  - Injection site bruising [Unknown]
  - Spinal pain [Unknown]

NARRATIVE: CASE EVENT DATE: 20210625
